FAERS Safety Report 4730729-7 (Version None)
Quarter: 2005Q3

REPORT INFORMATION
  Report Type: 
  Country: None (occurrence: None)
  Receive Date: 20050725
  Receipt Date: 20050223
  Transmission Date: 20060218
  Serious: No
  Sender: FDA-Public Use
  Company Number: USA050291672

PATIENT
  Age: 16 Year
  Sex: Female
  Weight: 58 kg

DRUGS (1)
  1. STRATTERA [Suspect]
     Indication: ATTENTION DEFICIT/HYPERACTIVITY DISORDER
     Dosage: 40 MG/1 DAY
     Dates: start: 20050222

REACTIONS (4)
  - DRUG INEFFECTIVE [None]
  - FATIGUE [None]
  - HUNGER [None]
  - SOMNOLENCE [None]
